FAERS Safety Report 9070910 (Version 1)
Quarter: 2013Q1

REPORT INFORMATION
  Report Type: Spontaneous
  Country: CA (occurrence: CA)
  Receive Date: 20130129
  Receipt Date: 20130129
  Transmission Date: 20140127
  Serious: Yes (Other)
  Sender: FDA-Public Use
  Company Number: CA-GLAXOSMITHKLINE-A1007185A

PATIENT
  Age: 64 None
  Sex: Male

DRUGS (18)
  1. VOTRIENT [Suspect]
     Indication: SARCOMA
     Dosage: 800MG PER DAY
     Route: 048
     Dates: start: 20120904, end: 20121220
  2. AMINO ACID [Concomitant]
  3. UNSPECIFIED MEDICATION [Concomitant]
  4. IMODIUM [Concomitant]
  5. PROSCAR [Concomitant]
  6. VIAGRA [Concomitant]
  7. VITAMIN [Concomitant]
  8. SELENIUM [Concomitant]
  9. GLUCOSE SULFATE [Concomitant]
  10. OMEGA 3 [Concomitant]
  11. CO-ENZYME Q10 [Concomitant]
  12. B12 [Concomitant]
  13. FOLIC ACID [Concomitant]
  14. POTASSIUM [Concomitant]
  15. VITAMIN C,B [Concomitant]
  16. ACIDOPHILUS [Concomitant]
  17. MINERALS [Concomitant]
  18. MULTI VITAMIN [Concomitant]

REACTIONS (6)
  - Neoplasm [Not Recovered/Not Resolved]
  - Abdominal discomfort [Not Recovered/Not Resolved]
  - Abdominal pain [Not Recovered/Not Resolved]
  - Diarrhoea [Not Recovered/Not Resolved]
  - Fatigue [Not Recovered/Not Resolved]
  - Malignant neoplasm progression [Unknown]
